FAERS Safety Report 5754304-0 (Version None)
Quarter: 2008Q2

REPORT INFORMATION
  Report Type: 
  Country: None (occurrence: None)
  Receive Date: 20080527
  Receipt Date: 20080508
  Transmission Date: 20081010
  Serious: Yes (Hospitalization)
  Sender: FDA-Public Use
  Company Number: 230005J07IRL

PATIENT
  Age: 45 Year
  Sex: Male

DRUGS (8)
  1. REBIF [Suspect]
     Dosage: 44 MCG, 3 IN 1 WEEKS, SUBCUTANEOUS
     Route: 058
     Dates: start: 20070704
  2. ALBUMIN (HUMAN) [Concomitant]
  3. CLOPIDOGREL BISULFATE [Concomitant]
  4. AMANTADINE /00055901/ [Concomitant]
  5. LANSOPRAZOLE [Concomitant]
  6. METOPROLOL /00376901/ [Concomitant]
  7. RAMIPRIL /00885601/ [Concomitant]
  8. ATORVASTATIN CALCIUM [Concomitant]

REACTIONS (1)
  - ACUTE MYOCARDIAL INFARCTION [None]
